FAERS Safety Report 9501354 (Version 1)
Quarter: 2013Q1

REPORT INFORMATION
  Report Type: Spontaneous
  Country: US (occurrence: None)
  Receive Date: 20130107
  Receipt Date: 20130107
  Transmission Date: 20140127
  Serious: No
  Sender: FDA-Public Use
  Company Number: PHEH2012US019556

PATIENT
  Age: 61 Year
  Sex: Female

DRUGS (11)
  1. GILENYA (FTY)CAPSULE, 0.5MG [Suspect]
     Indication: MULTIPLE SCLEROSIS
     Route: 048
     Dates: start: 20121002
  2. GABAPENTIN (GABAPENTIN) [Concomitant]
  3. VASOKLIN (MOXISYLYTE HYDROCHLORIDE) [Concomitant]
  4. LEVOTIRON (LEVOTHYROXINE SODIUM) [Concomitant]
  5. VITAMIN D (ERGOCALCIFEROL) [Concomitant]
  6. NEXIUM (ESOMEPRAZOLE MAGNEISUM) [Concomitant]
  7. CHLOROPHYLL (CHLOROPHYLL) [Concomitant]
  8. COLLAGEN (COLLAGEN) [Concomitant]
  9. VITAMIN C [Concomitant]
  10. DECONGESTANT AND ANTIALLERGICS (NO INGREDIENTS/SUBSTANCES) [Concomitant]
  11. PRIMROSE EXTRACT [Concomitant]

REACTIONS (5)
  - Anxiety [None]
  - Nervousness [None]
  - Feeling jittery [None]
  - Vision blurred [None]
  - Alopecia [None]
